FAERS Safety Report 13281290 (Version 1)
Quarter: 2017Q1

REPORT INFORMATION
  Report Type: Spontaneous
  Country: US (occurrence: US)
  Receive Date: 20170228
  Receipt Date: 20170228
  Transmission Date: 20170428
  Serious: No
  Sender: FDA-Public Use
  Company Number: None

PATIENT
  Age: 51 Year
  Sex: Male
  Weight: 63.9 kg

DRUGS (1)
  1. CLINDAMYCIN. [Suspect]
     Active Substance: CLINDAMYCIN
     Dosage: ?          OTHER FREQUENCY:Q6H;?
     Route: 042
     Dates: start: 20170209, end: 20170216

REACTIONS (1)
  - Rash [None]

NARRATIVE: CASE EVENT DATE: 20170214
